FAERS Safety Report 8712474 (Version 3)
Quarter: 2013Q1

REPORT INFORMATION
  Report Type: Spontaneous
  Country: IN (occurrence: IN)
  Receive Date: 20120808
  Receipt Date: 20130221
  Transmission Date: 20140127
  Serious: Yes (Other)
  Sender: FDA-Public Use
  Company Number: PHHY2012IN067831

PATIENT
  Age: 47 Year
  Sex: Male

DRUGS (2)
  1. GLIVEC [Suspect]
     Indication: CHRONIC MYELOID LEUKAEMIA
     Dosage: 600 MG, UNK
  2. GLIVEC [Suspect]
     Dosage: 800 MG, UNK

REACTIONS (2)
  - Aural polyp [Unknown]
  - Chromosome analysis abnormal [Unknown]
